FAERS Safety Report 15897337 (Version 1)
Quarter: 2019Q1

REPORT INFORMATION
  Report Type: Spontaneous
  Country: JP (occurrence: JP)
  Receive Date: 20190131
  Receipt Date: 20190131
  Transmission Date: 20190417
  Serious: Yes (Other)
  Sender: FDA-Public Use
  Company Number: JP-SEATTLE GENETICS-2018SGN02998

PATIENT
  Age: 82 Year
  Sex: Male

DRUGS (8)
  1. ADRIACIN [Concomitant]
     Active Substance: DOXORUBICIN HYDROCHLORIDE
     Dosage: 20 MILLIGRAM
     Route: 041
     Dates: start: 20181120
  2. DACARBAZINE. [Concomitant]
     Active Substance: DACARBAZINE
     Indication: HODGKIN^S DISEASE
     Dosage: 360 MILLIGRAM
     Route: 041
     Dates: start: 20181017
  3. ADRIACIN [Concomitant]
     Active Substance: DOXORUBICIN HYDROCHLORIDE
     Indication: HODGKIN^S DISEASE
     Dosage: 35 MILLIGRAM
     Route: 041
     Dates: start: 20181017
  4. DACARBAZINE. [Concomitant]
     Active Substance: DACARBAZINE
     Dosage: 200 MILLIGRAM
     Route: 041
     Dates: start: 20181120
  5. ADCETRIS [Suspect]
     Active Substance: BRENTUXIMAB VEDOTIN
     Indication: HODGKIN^S DISEASE
     Dosage: 60 MILLIGRAM, Q2WEEKS
     Route: 041
     Dates: start: 20181017
  6. ADCETRIS [Suspect]
     Active Substance: BRENTUXIMAB VEDOTIN
     Dosage: 30 MILLIGRAM, Q2WEEKS
     Route: 041
     Dates: start: 20181120
  7. EXAL [VINBLASTINE SULFATE] [Concomitant]
     Active Substance: VINBLASTINE SULFATE
     Indication: HODGKIN^S DISEASE
     Dosage: 8 MILLIGRAM
     Route: 041
     Dates: start: 20181017
  8. EXAL [VINBLASTINE SULFATE] [Concomitant]
     Active Substance: VINBLASTINE SULFATE
     Dosage: 4 MILLIGRAM
     Route: 041
     Dates: start: 20181120

REACTIONS (2)
  - Renal impairment [Not Recovered/Not Resolved]
  - Bone marrow failure [Recovered/Resolved]

NARRATIVE: CASE EVENT DATE: 201810
